FAERS Safety Report 8559927-1 (Version None)
Quarter: 2012Q3

REPORT INFORMATION
  Report Type: 
  Country: None (occurrence: None)
  Receive Date: 20120802
  Receipt Date: 20120723
  Transmission Date: 20120928
  Serious: Yes (Hospitalization)
  Sender: FDA-Public Use
  Company Number: CH-PFIZER INC-2012185478

PATIENT
  Age: 60 Year
  Sex: Male

DRUGS (5)
  1. SINTROM [Concomitant]
     Indication: VENA CAVA THROMBOSIS
     Dosage: UNK
     Route: 048
     Dates: start: 20111215
  2. PYRIDOXINE HYDROCHLORIDE [Concomitant]
     Indication: VITAMIN SUPPLEMENTATION
     Dosage: 300 MG, UNK
     Route: 048
  3. PANTOPRAZOLE [Suspect]
     Indication: PROPHYLAXIS
     Dosage: 40 MG, 1X/DAY
     Route: 048
     Dates: start: 20111213, end: 20120216
  4. RIMACTANE [Suspect]
     Indication: PULMONARY TUBERCULOSIS
     Dosage: 2350 MG, DAILY
     Route: 048
     Dates: start: 20111213, end: 20120209
  5. MYAMBUTOL [Concomitant]
     Dosage: 1200 MG, UNK
     Route: 048
     Dates: start: 20111213

REACTIONS (4)
  - DYSPNOEA [None]
  - NOCTURIA [None]
  - TUBULOINTERSTITIAL NEPHRITIS [None]
  - FATIGUE [None]
